FAERS Safety Report 7288602-9 (Version None)
Quarter: 2011Q1

REPORT INFORMATION
  Report Type: 
  Country: None (occurrence: None)
  Receive Date: 20110208
  Receipt Date: 20110208
  Transmission Date: 20110831
  Serious: Yes (Other)
  Sender: FDA-Public Use
  Company Number: None

PATIENT
  Age: 44 Year
  Sex: Female
  Weight: 104.3273 kg

DRUGS (1)
  1. BUPROPION HCL [Suspect]
     Indication: DEPRESSION
     Dosage: 200MG 1 DAILY PO
     Route: 048
     Dates: start: 20100913, end: 20101125

REACTIONS (9)
  - NAUSEA [None]
  - PRODUCT ODOUR ABNORMAL [None]
  - SOMNOLENCE [None]
  - VOMITING [None]
  - PAIN [None]
  - MALAISE [None]
  - FEELING ABNORMAL [None]
  - HEADACHE [None]
  - INFLUENZA LIKE ILLNESS [None]
